FAERS Safety Report 23711755 (Version 1)
Quarter: 2024Q2

REPORT INFORMATION
  Report Type: Report from Study
  Country: CA (occurrence: CA)
  Receive Date: 20240405
  Receipt Date: 20240405
  Transmission Date: 20240716
  Serious: Yes (Hospitalization)
  Sender: FDA-Public Use
  Company Number: CA-JAMP PHARMA CORPORATION-2023-JAM-CA-01417

PATIENT
  Age: 17 Year
  Sex: Male

DRUGS (1)
  1. SIMLANDI [Suspect]
     Active Substance: ADALIMUMAB-RYVK
     Indication: Hidradenitis
     Dosage: 40 MILLIGRAM, WEEKLY
     Route: 058

REACTIONS (2)
  - Hidradenitis [Unknown]
  - Product dose omission issue [Unknown]
